FAERS Safety Report 5884953-0 (Version None)
Quarter: 2008Q3

REPORT INFORMATION
  Report Type: 
  Country: None (occurrence: None)
  Receive Date: 20080916
  Receipt Date: 20080904
  Transmission Date: 20090109
  Serious: Yes (Hospitalization)
  Sender: FDA-Public Use
  Company Number: A0747620A

PATIENT
  Age: 62 Year
  Sex: Female
  Weight: 78.6 kg

DRUGS (2)
  1. AVANDIA [Suspect]
     Indication: TYPE 2 DIABETES MELLITUS
     Dosage: 8MG PER DAY
     Route: 065
     Dates: start: 20010101, end: 20060101
  2. AVANDAMET [Suspect]
     Indication: TYPE 2 DIABETES MELLITUS
     Route: 065
     Dates: start: 20010101, end: 20060101

REACTIONS (22)
  - ACUTE CORONARY SYNDROME [None]
  - AMNESIA [None]
  - ANXIETY [None]
  - ARRHYTHMIA [None]
  - ASTHENIA [None]
  - CARDIAC HYPERTROPHY [None]
  - CARDIOMYOPATHY [None]
  - CARDIOVASCULAR DISORDER [None]
  - CHEST PAIN [None]
  - CORONARY ARTERY DISEASE [None]
  - DEPRESSION [None]
  - DISORIENTATION [None]
  - DIZZINESS [None]
  - EYE DISORDER [None]
  - FRUSTRATION [None]
  - HEADACHE [None]
  - HYPERTENSION [None]
  - INSOMNIA [None]
  - MYOCARDIAL INFARCTION [None]
  - NEUROPATHY PERIPHERAL [None]
  - OEDEMA [None]
  - VISION BLURRED [None]
